FAERS Safety Report 7990759-9 (Version None)
Quarter: 2011Q4

REPORT INFORMATION
  Report Type: 
  Country: None (occurrence: None)
  Receive Date: 20111219
  Receipt Date: 20111219
  Transmission Date: 20120403
  Serious: Yes (Hospitalization, Other)
  Sender: FDA-Public Use
  Company Number: None

PATIENT
  Age: 55 Year
  Sex: Female
  Weight: 90.718 kg

DRUGS (1)
  1. LIPITOR [Suspect]
     Indication: BLOOD CHOLESTEROL INCREASED
     Dosage: ONE TABLET DAILY
     Dates: start: 20080101, end: 20110321

REACTIONS (5)
  - MUSCLE SPASMS [None]
  - MYOPATHY [None]
  - NEURALGIA [None]
  - MYALGIA [None]
  - TENDON PAIN [None]
